FAERS Safety Report 10763312 (Version 1)
Quarter: 2015Q1

REPORT INFORMATION
  Report Type: Spontaneous
  Country: US (occurrence: None)
  Receive Date: 20150129
  Receipt Date: 20150129
  Transmission Date: 20150721
  Serious: Yes (Hospitalization)
  Sender: FDA-Public Use
  Company Number: 2014015855

PATIENT
  Age: 29 Year
  Sex: Female

DRUGS (1)
  1. KEPPRA XR [Suspect]
     Active Substance: LEVETIRACETAM
     Dates: start: 2009, end: 2014

REACTIONS (1)
  - Seizure [None]

NARRATIVE: CASE EVENT DATE: 201410
